FAERS Safety Report 14474937 (Version 2)
Quarter: 2019Q1

REPORT INFORMATION
  Report Type: Spontaneous
  Country: US (occurrence: US)
  Receive Date: 20180201
  Receipt Date: 20190318
  Transmission Date: 20190417
  Serious: Yes (Other)
  Sender: FDA-Public Use
  Company Number: US-PFIZER INC-2018043372

PATIENT
  Age: 52 Year
  Sex: Female

DRUGS (1)
  1. LYRICA [Suspect]
     Active Substance: PREGABALIN
     Dosage: UNK UNK, AS NEEDED (CHOSEN AGAINST TAKING IT DAILY WHEN NEEDED)

REACTIONS (2)
  - Intentional product misuse [Unknown]
  - Systemic lupus erythematosus [Unknown]
